FAERS Safety Report 6193308-3 (Version None)
Quarter: 2009Q2

REPORT INFORMATION
  Report Type: 
  Country: None (occurrence: None)
  Receive Date: 20090518
  Receipt Date: 20090512
  Transmission Date: 20091009
  Serious: Yes (Hospitalization)
  Sender: FDA-Public Use
  Company Number: PHHO2009US03196

PATIENT
  Sex: Female
  Weight: 59.637 kg

DRUGS (2)
  1. STI571/CGP57148B T35717+TAB [Suspect]
     Indication: BREAST CANCER METASTATIC
     Dosage: 400 MG, QD
     Route: 048
     Dates: start: 20090217
  2. GEMZAR COMP-GEZ+ [Suspect]
     Indication: BREAST CANCER METASTATIC
     Dosage: UNK
     Route: 042
     Dates: start: 20090217

REACTIONS (13)
  - ABDOMINAL PAIN [None]
  - DEHYDRATION [None]
  - DYSPHONIA [None]
  - EPISTAXIS [None]
  - FATIGUE [None]
  - HAEMOPTYSIS [None]
  - LIVER FUNCTION TEST ABNORMAL [None]
  - NAUSEA [None]
  - NEUTROPENIA [None]
  - OROPHARYNGEAL PAIN [None]
  - PAIN [None]
  - THROMBOCYTOPENIA [None]
  - VOMITING [None]
